FAERS Safety Report 14510215 (Version 5)
Quarter: 2021Q2

REPORT INFORMATION
  Report Type: Spontaneous
  Country: US (occurrence: US)
  Receive Date: 20180209
  Receipt Date: 20210630
  Transmission Date: 20210716
  Serious: Yes (Other)
  Sender: FDA-Public Use
  Company Number: US-GLAXOSMITHKLINE-US2018GSK022545

PATIENT
  Age: 66 Year
  Sex: Female

DRUGS (2)
  1. PREVACID 24 HR [Suspect]
     Active Substance: LANSOPRAZOLE
     Indication: GASTROOESOPHAGEAL REFLUX DISEASE
     Dosage: UNK
     Route: 048
     Dates: start: 20090518, end: 201401
  2. NEXIUM [Suspect]
     Active Substance: ESOMEPRAZOLE MAGNESIUM
     Indication: PRODUCT USED FOR UNKNOWN INDICATION
     Dosage: UNK
     Route: 065
     Dates: start: 20090814, end: 20100504

REACTIONS (9)
  - Nephrolithiasis [Unknown]
  - Injury [Unknown]
  - Renal cancer [Unknown]
  - Impaired quality of life [Unknown]
  - Fear of disease [Unknown]
  - Mental disorder [Unknown]
  - Renal injury [Unknown]
  - Chronic kidney disease [Unknown]
  - Pain [Unknown]

NARRATIVE: CASE EVENT DATE: 20130826
